FAERS Safety Report 4356282-8 (Version None)
Quarter: 2004Q2

REPORT INFORMATION
  Report Type: 
  Country: None (occurrence: None)
  Receive Date: 20040506
  Receipt Date: 20040423
  Transmission Date: 20050107
  Serious: Yes (Hospitalization, Other)
  Sender: FDA-Public Use
  Company Number: 2004020212

PATIENT
  Age: 50 Year
  Sex: Male

DRUGS (3)
  1. PHENYTOIN [Suspect]
     Indication: EPILEPSY
     Dosage: SEE IMAGE
     Route: 042
  2. CALCIUM CARBONATE (CALCIUM CARBONATE) [Concomitant]
  3. CALCITROL (CALCIUM CARBONATE, ERGOCALCIFEROL, RETINOL) [Concomitant]

REACTIONS (5)
  - ANTICONVULSANT DRUG LEVEL DECREASED [None]
  - FALL [None]
  - MUSCULOSKELETAL DISORDER [None]
  - SPINAL CORD COMPRESSION [None]
  - ULCER [None]
